FAERS Safety Report 10459656 (Version 2)
Quarter: 2014Q4

REPORT INFORMATION
  Report Type: Spontaneous
  Country: FR (occurrence: FR)
  Receive Date: 20140917
  Receipt Date: 20141112
  Transmission Date: 20150528
  Serious: Yes (Other)
  Sender: FDA-Public Use
  Company Number: FR-BRISTOL-MYERS SQUIBB COMPANY-21375043

PATIENT
  Age: 68 Year
  Sex: Male

DRUGS (8)
  1. ORENCIA [Suspect]
     Active Substance: ABATACEPT
     Indication: RHEUMATOID ARTHRITIS
     Route: 042
     Dates: start: 2007, end: 201406
  2. ORENCIA [Suspect]
     Active Substance: ABATACEPT
     Indication: RHEUMATOID ARTHRITIS
     Dosage: INTER ON 28-OCT-2014
     Route: 058
     Dates: start: 201408
  3. EFIENT [Concomitant]
     Active Substance: PRASUGREL HYDROCHLORIDE
  4. METHOTREXATE [Concomitant]
     Active Substance: METHOTREXATE
  5. KARDEGIC [Concomitant]
     Active Substance: ASPIRIN LYSINE
  6. MONO-TILDIEM [Concomitant]
     Active Substance: DILTIAZEM HYDROCHLORIDE
  7. TAHOR [Concomitant]
     Active Substance: ATORVASTATIN CALCIUM
  8. INEXIUM [Concomitant]
     Active Substance: ESOMEPRAZOLE

REACTIONS (1)
  - Weight decreased [Unknown]

NARRATIVE: CASE EVENT DATE: 201212
